FAERS Safety Report 8614914 (Version 2)
Quarter: 2013Q3

REPORT INFORMATION
  Report Type: Spontaneous
  Country: DK (occurrence: DK)
  Receive Date: 20120614
  Receipt Date: 20130820
  Transmission Date: 20140515
  Serious: Yes (Congenital Anomaly)
  Sender: FDA-Public Use
  Company Number: DK-GLAXOSMITHKLINE-B0807970A

PATIENT
  Age: 0 Day
  Sex: Female
  Weight: 2.7 kg

DRUGS (7)
  1. ZOFRAN [Suspect]
     Indication: NAUSEA
     Dosage: 1TAB PER DAY
     Route: 064
  2. POSTAFEN [Concomitant]
     Indication: NAUSEA
  3. PRIMPERAN [Concomitant]
     Indication: NAUSEA
  4. THYCAPZOL [Concomitant]
     Indication: NAUSEA
  5. PROPYLTHIOURACIL [Concomitant]
     Indication: NAUSEA
  6. PYRIDOXINE [Concomitant]
     Route: 065
  7. PANTOLOC [Concomitant]
     Route: 065

REACTIONS (2)
  - Hemiplegia [Not Recovered/Not Resolved]
  - Foetal exposure during pregnancy [Unknown]
